FAERS Safety Report 21850882 (Version 2)
Quarter: 2023Q1

REPORT INFORMATION
  Report Type: Other
  Country: US (occurrence: None)
  Receive Date: 20230111
  Receipt Date: 20230215
  Transmission Date: 20230417
  Serious: Yes (Other)
  Sender: FDA-Public Use
  Company Number: US-ROCHE-2367426

PATIENT
  Sex: Female

DRUGS (17)
  1. CELLCEPT [Suspect]
     Active Substance: MYCOPHENOLATE MOFETIL
     Indication: Sarcoidosis
     Route: 048
  2. CELLCEPT [Suspect]
     Active Substance: MYCOPHENOLATE MOFETIL
     Indication: Cardiac sarcoidosis
     Dosage: 3 TABLETS TWICE DAILY=1250MG BID^,
     Route: 048
  3. CELLCEPT [Suspect]
     Active Substance: MYCOPHENOLATE MOFETIL
     Indication: Pulmonary sarcoidosis
     Dosage: 2 TABS BID
     Route: 065
  4. CELLCEPT [Suspect]
     Active Substance: MYCOPHENOLATE MOFETIL
     Dosage: 500MG 3 BID
     Route: 065
  5. CELLCEPT [Suspect]
     Active Substance: MYCOPHENOLATE MOFETIL
     Dosage: 2 TABS BID
     Route: 065
  6. CELLCEPT [Suspect]
     Active Substance: MYCOPHENOLATE MOFETIL
     Route: 048
  7. CELLCEPT [Suspect]
     Active Substance: MYCOPHENOLATE MOFETIL
     Indication: Sarcoidosis
     Dosage: ^1 TAB BID WITH 2 500MG TABS...^
     Route: 048
  8. CELLCEPT [Suspect]
     Active Substance: MYCOPHENOLATE MOFETIL
     Indication: Cardiac sarcoidosis
     Dosage: 1 TAB
     Route: 048
  9. CELLCEPT [Suspect]
     Active Substance: MYCOPHENOLATE MOFETIL
     Dosage: 1 CAP BID
     Route: 048
  10. ASPIRIN [Concomitant]
     Active Substance: ASPIRIN
     Dosage: DAILY
     Route: 048
  11. BUPROPION [Concomitant]
     Active Substance: BUPROPION
     Dosage: DAILY
     Route: 048
  12. ACETAMINOPHEN\HYDROCODONE [Concomitant]
     Active Substance: ACETAMINOPHEN\HYDROCODONE
     Dosage: EVERY 6 HOURS
     Route: 048
  13. LEVOTHYROXINE [Concomitant]
     Active Substance: LEVOTHYROXINE
     Dosage: TAKE 112MCG TABLET
     Route: 048
  14. LOSARTAN [Concomitant]
     Active Substance: LOSARTAN
     Dosage: DAILY
     Route: 048
  15. MELOXICAM [Concomitant]
     Active Substance: MELOXICAM
  16. POTASSIUM CHLORIDE [Concomitant]
     Active Substance: POTASSIUM CHLORIDE
  17. PREDNISONE [Concomitant]
     Active Substance: PREDNISONE

REACTIONS (7)
  - Off label use [Unknown]
  - Product prescribing error [Unknown]
  - Circumstance or information capable of leading to medication error [Unknown]
  - Pneumonia [Recovered/Resolved]
  - Stomatitis [Unknown]
  - Oropharyngeal pain [Unknown]
  - Pyrexia [Unknown]
